FAERS Safety Report 4353586-X (Version None)
Quarter: 2004Q2

REPORT INFORMATION
  Report Type: 
  Country: None (occurrence: None)
  Receive Date: 20040505
  Receipt Date: 20040421
  Transmission Date: 20050107
  Serious: Yes (Other)
  Sender: FDA-Public Use
  Company Number: IE-BRISTOL-MYERS SQUIBB COMPANY-12579132

PATIENT
  Age: 58 Year
  Sex: Male

DRUGS (2)
  1. MITOXANA [Suspect]
     Dates: start: 20040329, end: 20040329
  2. UROMITEXAN [Suspect]
     Dates: start: 20040329, end: 20040329

REACTIONS (2)
  - CONFUSIONAL STATE [None]
  - HALLUCINATION [None]
